FAERS Safety Report 18785200 (Version 1)
Quarter: 2021Q1

REPORT INFORMATION
  Report Type: Spontaneous
  Country: US (occurrence: US)
  Receive Date: 20210125
  Receipt Date: 20210125
  Transmission Date: 20210419
  Serious: Yes (Death)
  Sender: FDA-Public Use
  Company Number: US-SYNEX-T202100244

PATIENT
  Sex: Female

DRUGS (2)
  1. INOMAX [Suspect]
     Active Substance: NITRIC OXIDE
     Indication: HYPOXIA
  2. INOMAX [Suspect]
     Active Substance: NITRIC OXIDE
     Indication: COVID-19
     Dosage: UNK (INHALATION)
     Route: 055

REACTIONS (2)
  - Product use in unapproved indication [Unknown]
  - COVID-19 [Fatal]
